FAERS Safety Report 9201849 (Version 1)
Quarter: 2013Q2

REPORT INFORMATION
  Report Type: Spontaneous
  Country: ES (occurrence: ES)
  Receive Date: 20130401
  Receipt Date: 20130401
  Transmission Date: 20140414
  Serious: Yes (Other)
  Sender: FDA-Public Use
  Company Number: ES-ELI_LILLY_AND_COMPANY-ES201303008103

PATIENT
  Age: 64 Year
  Sex: Male
  Weight: 78 kg

DRUGS (3)
  1. ALIMTA [Suspect]
     Indication: LUNG NEOPLASM MALIGNANT
     Dosage: UNK, OTHER
     Route: 042
     Dates: start: 20130326
  2. FLUMIL                             /00082801/ [Concomitant]
     Indication: BRONCHIAL SECRETION RETENTION
     Dosage: 200 MG, TID
     Route: 048
     Dates: start: 20120420
  3. DIANBEN [Concomitant]
     Indication: DIABETES MELLITUS
     Dosage: 850 MG, QD
     Route: 048

REACTIONS (1)
  - Chest pain [Not Recovered/Not Resolved]
